FAERS Safety Report 9115745 (Version 1)
Quarter: 2013Q1

REPORT INFORMATION
  Report Type: Spontaneous
  Country: US (occurrence: US)
  Receive Date: 20130224
  Receipt Date: 20130224
  Transmission Date: 20140127
  Serious: Yes (Hospitalization)
  Sender: FDA-Public Use
  Company Number: US-ROXANE LABORATORIES, INC.-2013-RO-00274RO

PATIENT
  Age: 4 Year
  Sex: Male

DRUGS (30)
  1. DEXAMETHASONE [Suspect]
     Indication: ACUTE LYMPHOCYTIC LEUKAEMIA
     Dosage: 15.75 MG
     Dates: start: 20121221, end: 20121225
  2. SPRYCEL [Suspect]
     Indication: ACUTE LYMPHOCYTIC LEUKAEMIA
     Dosage: 50 MG
     Route: 048
     Dates: start: 20121221, end: 20121227
  3. SPRYCEL [Suspect]
     Dosage: 50 MG
     Route: 048
     Dates: start: 20121231, end: 20130102
  4. MESNA [Suspect]
     Indication: ACUTE LYMPHOCYTIC LEUKAEMIA
     Dates: start: 20121222, end: 20121224
  5. CYCLOPHOSPHAMIDE [Suspect]
     Indication: ACUTE LYMPHOCYTIC LEUKAEMIA
     Dosage: 320 MG
     Route: 042
  6. CYCLOPHOSPHAMIDE [Suspect]
     Dosage: 50 MG
     Route: 048
     Dates: start: 20121231, end: 20130102
  7. ARA-C [Suspect]
     Indication: ACUTE LYMPHOCYTIC LEUKAEMIA
     Route: 037
  8. ARA-C [Suspect]
     Dosage: 3200 MG
     Route: 042
     Dates: start: 20121225, end: 20121225
  9. METHOTREXATE [Suspect]
     Indication: ACUTE LYMPHOCYTIC LEUKAEMIA
     Route: 037
  10. METHOTREXATE [Suspect]
     Dosage: 4000 MG
     Route: 037
     Dates: start: 20121221, end: 20121221
  11. 6-MP [Suspect]
     Indication: ACUTE LYMPHOCYTIC LEUKAEMIA
     Route: 037
  12. LEUCOVORIN [Suspect]
     Indication: ACUTE LYMPHOCYTIC LEUKAEMIA
     Route: 042
  13. VINCRISTINE [Suspect]
     Indication: ACUTE LYMPHOCYTIC LEUKAEMIA
     Dosage: 12 MG
     Route: 042
     Dates: start: 20121222, end: 20121222
  14. VINCRISTINE [Suspect]
     Dosage: 12 MG
     Route: 042
     Dates: start: 20121226, end: 20121226
  15. PEGASPARGASE [Suspect]
     Indication: ACUTE LYMPHOCYTIC LEUKAEMIA
     Dosage: 2000 U
     Route: 042
     Dates: start: 20121226, end: 20121226
  16. HYDROCORTISONE [Suspect]
     Indication: ACUTE LYMPHOCYTIC LEUKAEMIA
     Route: 037
  17. PERIDEX [Concomitant]
     Dates: start: 20120927
  18. ENULOSE [Concomitant]
     Dates: start: 20120927
  19. MIRALAX [Concomitant]
     Dates: start: 20120927
  20. NORMAL SALINE [Concomitant]
     Dates: start: 20121029, end: 20121029
  21. NORMAL SALINE [Concomitant]
     Dates: start: 20121230, end: 20121231
  22. TYLENOL [Concomitant]
     Dates: start: 20121230, end: 20121231
  23. LIDOCAINE [Concomitant]
     Dates: start: 20121230, end: 20121230
  24. MAXIPIME [Concomitant]
     Dates: start: 20121230
  25. ROBITUSSIN [Concomitant]
     Dates: start: 20121231
  26. DEXTROSE [Concomitant]
  27. MYCOSTATIN [Concomitant]
     Dates: start: 20121228
  28. SULFATRIM [Concomitant]
     Dates: start: 20121022
  29. ZOFRAN [Concomitant]
     Dates: start: 20121022
  30. HEPARIN [Concomitant]
     Dates: start: 20121018

REACTIONS (7)
  - Epistaxis [Unknown]
  - Upper respiratory tract infection [Unknown]
  - Haematochezia [Unknown]
  - Gingival bleeding [Unknown]
  - Rhinorrhoea [Unknown]
  - Diarrhoea [Unknown]
  - Febrile neutropenia [Unknown]
